FAERS Safety Report 6510142-2 (Version None)
Quarter: 2009Q4

REPORT INFORMATION
  Report Type: 
  Country: None (occurrence: None)
  Receive Date: 20091222
  Receipt Date: 20091217
  Transmission Date: 20100525
  Serious: Yes (Death)
  Sender: FDA-Public Use
  Company Number: B0616920A

PATIENT
  Sex: Male

DRUGS (2)
  1. REQUIP [Suspect]
     Indication: PARKINSON'S DISEASE
     Route: 048
     Dates: start: 20040101, end: 20090413
  2. MODOPAR [Suspect]
     Indication: PARKINSON'S DISEASE
     Dosage: 62.5MG TWICE PER DAY
     Route: 048
     Dates: start: 20090202, end: 20090223

REACTIONS (4)
  - ASTHENIA [None]
  - MULTI-ORGAN FAILURE [None]
  - PALLOR [None]
  - PANCYTOPENIA [None]
